FAERS Safety Report 6052554-X (Version None)
Quarter: 2009Q1

REPORT INFORMATION
  Report Type: 
  Country: None (occurrence: None)
  Receive Date: 20090121
  Receipt Date: 20090105
  Transmission Date: 20090719
  Serious: Yes (Hospitalization)
  Sender: FDA-Public Use
  Company Number: WAES 0901USA01980

PATIENT
  Age: 40 Year
  Sex: Male
  Weight: 53.978 kg

DRUGS (9)
  1. DECADRON [Suspect]
     Dosage: 2 MG/BID/PO
     Route: 048
  2. VORINOSTAT [Suspect]
     Indication: GLIOBLASTOMA MULTIFORME
     Dosage: SEE IMAGE
     Route: 048
     Dates: start: 20081118, end: 20081130
  3. VORINOSTAT [Suspect]
     Indication: GLIOBLASTOMA MULTIFORME
     Dosage: SEE IMAGE
     Route: 048
     Dates: start: 20081209, end: 20081222
  4. UNKNOWN [Suspect]
  5. VELCADE [Suspect]
     Indication: GLIOBLASTOMA MULTIFORME
     Dosage: SEE IMAGE
     Route: 042
     Dates: start: 20081118, end: 20081125
  6. VELCADE [Suspect]
     Indication: GLIOBLASTOMA MULTIFORME
     Dosage: SEE IMAGE
     Route: 042
     Dates: start: 20081219, end: 20081219
  7. VELCADE [Suspect]
     Indication: GLIOBLASTOMA MULTIFORME
     Dosage: 0.7 MG/M[2]/1X/IV
     Route: 042
     Dates: start: 20081219, end: 20081219
  8. KEPPRA [Concomitant]
  9. MAXZIDE [Concomitant]

REACTIONS (5)
  - BRAIN OEDEMA [None]
  - DYSARTHRIA [None]
  - MENTAL STATUS CHANGES [None]
  - SOMNOLENCE [None]
  - THROMBOCYTOPENIA [None]
